FAERS Safety Report 11399246 (Version 2)
Quarter: 2015Q3

REPORT INFORMATION
  Report Type: Report from Study
  Country: US (occurrence: US)
  Receive Date: 20150820
  Receipt Date: 20150827
  Transmission Date: 20151125
  Serious: Yes (Hospitalization)
  Sender: FDA-Public Use
  Company Number: US-WATSON-2015-17243

PATIENT
  Age: 34 Year
  Sex: Female
  Weight: 62.5 kg

DRUGS (2)
  1. MORPHINE CR (COMPARATOR, PURDUE PHARMA) [Suspect]
     Active Substance: MORPHINE SULFATE
     Indication: PRODUCT USED FOR UNKNOWN INDICATION
     Dosage: 1 TABLET, ONE ONLY
     Route: 048
     Dates: start: 20150731, end: 20150731
  2. NALOXONE [Concomitant]
     Active Substance: NALOXONE

REACTIONS (1)
  - Gastritis [Recovered/Resolved]

NARRATIVE: CASE EVENT DATE: 20150802
